FAERS Safety Report 24539578 (Version 2)
Quarter: 2024Q4

REPORT INFORMATION
  Report Type: Spontaneous
  Country: CA (occurrence: CA)
  Receive Date: 20241023
  Receipt Date: 20241112
  Transmission Date: 20250114
  Serious: Yes (Death, Other)
  Sender: NOVARTIS
  Company Number: CA-002147023-NVSC2024CA205955

PATIENT
  Age: 72 Year
  Sex: Male

DRUGS (1)
  1. DEFERASIROX [Suspect]
     Active Substance: DEFERASIROX
     Indication: Anaemia
     Dosage: 750 MG, Q24H
     Route: 048

REACTIONS (1)
  - Death [Fatal]
